FAERS Safety Report 20190602 (Version 1)
Quarter: 2021Q4

REPORT INFORMATION
  Report Type: Spontaneous
  Country: US (occurrence: None)
  Receive Date: 20211216
  Receipt Date: 20211216
  Transmission Date: 20220303
  Serious: No
  Sender: FDA-Public Use
  Company Number: US-MDD US Operations-SUP202106-001055

PATIENT
  Age: 31 Year
  Sex: Female
  Weight: 99.79 kg

DRUGS (4)
  1. TROKENDI XR [Suspect]
     Active Substance: TOPIRAMATE
     Indication: Intracranial pressure increased
     Dosage: NOT PROVIDED
     Dates: start: 202011
  2. TROKENDI XR [Suspect]
     Active Substance: TOPIRAMATE
     Dosage: NOT PROVIDED
     Dates: start: 202011
  3. TROKENDI XR [Suspect]
     Active Substance: TOPIRAMATE
     Dosage: NOT PROVIDED
     Dates: start: 202011
  4. TROKENDI XR [Suspect]
     Active Substance: TOPIRAMATE
     Dosage: NOT PROVIDED
     Dates: start: 202011

REACTIONS (3)
  - Pain [Unknown]
  - Abdominal pain [Unknown]
  - Product use in unapproved indication [Unknown]

NARRATIVE: CASE EVENT DATE: 20201101
